FAERS Safety Report 11244561 (Version 3)
Quarter: 2015Q3

REPORT INFORMATION
  Report Type: Spontaneous
  Country: US (occurrence: US)
  Receive Date: 20150707
  Receipt Date: 20150820
  Transmission Date: 20151125
  Serious: Yes (Other)
  Sender: FDA-Public Use
  Company Number: US-PFIZER INC-2015221005

PATIENT
  Age: 50 Year
  Sex: Male
  Weight: 49.89 kg

DRUGS (1)
  1. VFEND [Suspect]
     Active Substance: VORICONAZOLE
     Indication: ASPERGILLUS INFECTION
     Dosage: 200 MG, 2X/DAY (EVERY 12 HOURS)
     Route: 048
     Dates: start: 201506

REACTIONS (7)
  - Disease progression [Unknown]
  - Asthenia [Unknown]
  - Malaise [Unknown]
  - Dizziness [Unknown]
  - Dyspnoea [Unknown]
  - Lung neoplasm [Unknown]
  - No therapeutic response [Unknown]

NARRATIVE: CASE EVENT DATE: 201506
